FAERS Safety Report 12377409 (Version 1)
Quarter: 2016Q2

REPORT INFORMATION
  Report Type: Spontaneous
  Country: US (occurrence: US)
  Receive Date: 20160517
  Receipt Date: 20160517
  Transmission Date: 20160815
  Serious: Yes (Other)
  Sender: FDA-Public Use
  Company Number: US-PFIZER INC-2016224859

PATIENT
  Age: 74 Year
  Sex: Female

DRUGS (2)
  1. AROMASIN [Suspect]
     Active Substance: EXEMESTANE
     Indication: BREAST CANCER
     Dosage: 25 MG, 1X/DAY
     Dates: start: 20151010, end: 20151105
  2. AROMASIN [Suspect]
     Active Substance: EXEMESTANE
     Dosage: 25 MG, 1X/DAY
     Dates: start: 20151120

REACTIONS (6)
  - Pharyngeal oedema [Recovered/Resolved]
  - Scratch [Unknown]
  - Arthritis [Not Recovered/Not Resolved]
  - Pruritus generalised [Unknown]
  - Melanocytic naevus [Unknown]
  - Erythema [Unknown]

NARRATIVE: CASE EVENT DATE: 20151010
